FAERS Safety Report 13943949 (Version 1)
Quarter: 2017Q3

REPORT INFORMATION
  Report Type: Spontaneous
  Country: US (occurrence: US)
  Receive Date: 20170907
  Receipt Date: 20170907
  Transmission Date: 20171128
  Serious: No
  Sender: FDA-Public Use
  Company Number: US-AUROBINDO-AUR-APU-2017-38346

PATIENT
  Age: 68 Year
  Sex: Male
  Weight: 71.66 kg

DRUGS (1)
  1. SILDENAFIL CITRATE TABLETS 20MG [Suspect]
     Active Substance: SILDENAFIL CITRATE
     Indication: ERECTILE DYSFUNCTION
     Dosage: 5 DF, DAILY
     Dates: start: 20170726, end: 20170727

REACTIONS (2)
  - Drug ineffective [Unknown]
  - Product substitution issue [Unknown]
